FAERS Safety Report 5245647-8 (Version None)
Quarter: 2007Q1

REPORT INFORMATION
  Report Type: 
  Country: None (occurrence: None)
  Receive Date: 20070223
  Receipt Date: 20070212
  Transmission Date: 20070707
  Serious: Yes (Other)
  Sender: FDA-Public Use
  Company Number: US-PFIZER INC-2007011769

PATIENT
  Age: 42 Year
  Sex: Female

DRUGS (1)
  1. CHANTIX [Suspect]
     Indication: SMOKING CESSATION THERAPY

REACTIONS (14)
  - ADVERSE DRUG REACTION [None]
  - DIZZINESS [None]
  - DYSARTHRIA [None]
  - EYE HAEMORRHAGE [None]
  - EYE PAIN [None]
  - FALL [None]
  - FEELING COLD [None]
  - HALLUCINATION, AUDITORY [None]
  - HALLUCINATION, VISUAL [None]
  - HEAD BANGING [None]
  - MEMORY IMPAIRMENT [None]
  - NAUSEA [None]
  - PALLOR [None]
  - TREMOR [None]
